FAERS Safety Report 14275284 (Version 3)
Quarter: 2018Q1

REPORT INFORMATION
  Report Type: Report from Study
  Country: US (occurrence: US)
  Receive Date: 20171211
  Receipt Date: 20180214
  Transmission Date: 20180508
  Serious: Yes (Hospitalization, Other)
  Sender: FDA-Public Use
  Company Number: US-JNJFOC-20171212250

PATIENT
  Age: 66 Year
  Sex: Female
  Weight: 47.17 kg

DRUGS (1)
  1. USTEKINUMAB [Suspect]
     Active Substance: USTEKINUMAB
     Indication: PSORIASIS
     Route: 058
     Dates: start: 201305

REACTIONS (1)
  - Squamous cell carcinoma of the vulva [Recovered/Resolved]

NARRATIVE: CASE EVENT DATE: 201710
